FAERS Safety Report 7037028-1 (Version None)
Quarter: 2010Q4

REPORT INFORMATION
  Report Type: 
  Country: None (occurrence: None)
  Receive Date: 20101011
  Receipt Date: 20100930
  Transmission Date: 20110411
  Serious: Yes (Hospitalization, Other)
  Sender: FDA-Public Use
  Company Number: BR-BAXTER-2010BH023417

PATIENT
  Age: 62 Year
  Sex: Female
  Weight: 64 kg

DRUGS (6)
  1. ALBUMIN (HUMAN) [Suspect]
     Indication: HYPOPROTEINAEMIA
     Route: 042
     Dates: start: 20100902, end: 20100909
  2. CAPTOPRIL [Concomitant]
     Indication: HYPERTENSION
     Route: 048
     Dates: start: 20100830, end: 20100910
  3. FUROSEMIDE [Concomitant]
     Indication: SWELLING
     Route: 048
     Dates: start: 20100830, end: 20100910
  4. DIGOXIN [Concomitant]
     Indication: CARDIAC FAILURE CONGESTIVE
     Route: 048
     Dates: start: 20100830, end: 20100910
  5. RANITIDINE [Concomitant]
     Indication: ABDOMINAL PAIN UPPER
     Route: 048
     Dates: start: 20100830, end: 20100910
  6. ESPIRONOLACTONA [Concomitant]
     Indication: FLUID RETENTION
     Route: 048
     Dates: start: 20100830, end: 20100910

REACTIONS (8)
  - HEADACHE [None]
  - HYPERTENSION [None]
  - HYPERTHERMIA [None]
  - MALAISE [None]
  - RENAL PAIN [None]
  - SEPTIC SHOCK [None]
  - TACHYCARDIA [None]
  - TREMOR [None]
